FAERS Safety Report 20309118 (Version 1)
Quarter: 2022Q1

REPORT INFORMATION
  Report Type: Spontaneous
  Country: US (occurrence: None)
  Receive Date: 20220106
  Receipt Date: 20220106
  Transmission Date: 20220423
  Serious: Yes (Death, Hospitalization)
  Sender: FDA-Public Use
  Company Number: None

PATIENT
  Age: 55 Year
  Sex: Female

DRUGS (1)
  1. OPSUMIT [Suspect]
     Active Substance: MACITENTAN
     Indication: Pulmonary arterial hypertension
     Dosage: 10MG  QD ORAL
     Route: 048
     Dates: start: 20170803, end: 20211226

REACTIONS (5)
  - Pulseless electrical activity [None]
  - Malaise [None]
  - Pallor [None]
  - Cyanosis [None]
  - Cardiac arrest [None]

NARRATIVE: CASE EVENT DATE: 20211228
